FAERS Safety Report 4980773-X (Version None)
Quarter: 2006Q2

REPORT INFORMATION
  Report Type: 
  Country: None (occurrence: None)
  Receive Date: 20060424
  Receipt Date: 20060327
  Transmission Date: 20061013
  Serious: Yes (Hospitalization, Other)
  Sender: FDA-Public Use
  Company Number: GR-AVENTIS-200613209GDDC

PATIENT
  Age: 32 Year
  Sex: Female

DRUGS (3)
  1. ARAVA [Suspect]
     Route: 048
     Dates: start: 20051010, end: 20051028
  2. PREDNISONE [Concomitant]
     Route: 048
     Dates: start: 19990101
  3. LEVOTHYROXIN SODIUM [Concomitant]
     Indication: HYPOTHYROIDISM
     Dates: start: 19960101

REACTIONS (6)
  - CHILLS [None]
  - HEADACHE [None]
  - HEPATOTOXICITY [None]
  - PYREXIA [None]
  - RASH [None]
  - VOMITING [None]
